FAERS Safety Report 7384595-4 (Version None)
Quarter: 2011Q1

REPORT INFORMATION
  Report Type: 
  Country: None (occurrence: None)
  Receive Date: 20110323
  Receipt Date: 20110316
  Transmission Date: 20110831
  Serious: Yes (Death)
  Sender: FDA-Public Use
  Company Number: DSA_45203_2011

PATIENT
  Sex: Male
  Weight: 79.3795 kg

DRUGS (1)
  1. XENAZINE [Suspect]
     Indication: HUNTINGTON'S DISEASE
     Dosage: 25 MG, QID, ORAL
     Route: 048
     Dates: start: 20101115

REACTIONS (1)
  - DEATH [None]
